FAERS Safety Report 19396837 (Version 4)
Quarter: 2022Q1

REPORT INFORMATION
  Report Type: Spontaneous
  Country: US (occurrence: US)
  Receive Date: 20210610
  Receipt Date: 20220302
  Transmission Date: 20220424
  Serious: Yes (Other)
  Sender: FDA-Public Use
  Company Number: US-JNJFOC-20210605450

PATIENT
  Age: 57 Year
  Sex: Female

DRUGS (1)
  1. ELMIRON [Suspect]
     Active Substance: PENTOSAN POLYSULFATE SODIUM
     Indication: Cystitis interstitial
     Dosage: 100MG 4 TIMES PER DAY ENDED 2 TIMES PER DAY
     Route: 048
     Dates: start: 20090501, end: 20200831

REACTIONS (5)
  - Macular degeneration [Unknown]
  - Retinal injury [Unknown]
  - Cataract nuclear [Unknown]
  - Off label use [Unknown]
  - Product use issue [Unknown]

NARRATIVE: CASE EVENT DATE: 20090501
